FAERS Safety Report 6754480-7 (Version None)
Quarter: 2010Q2

REPORT INFORMATION
  Report Type: 
  Country: None (occurrence: None)
  Receive Date: 20100601
  Receipt Date: 20100517
  Transmission Date: 20101027
  Serious: Yes (Death, Other)
  Sender: FDA-Public Use
  Company Number: CLOF-1000580

PATIENT
  Age: 51 Year
  Sex: Male
  Weight: 73 kg

DRUGS (4)
  1. CLOLAR [Suspect]
     Indication: ACUTE MYELOID LEUKAEMIA
     Dosage: 54 MG, QDX5, INTRAVENOUS
     Route: 042
     Dates: start: 20090402, end: 20090406
  2. CAMPATH [Suspect]
     Indication: ACUTE MYELOID LEUKAEMIA
     Dosage: 20 MG, QDX5, INTRAVENOUS
     Route: 042
     Dates: start: 20090402, end: 20090406
  3. ANTIBIOTICS [Concomitant]
  4. ANTIFUNGALS [Concomitant]

REACTIONS (17)
  - ACIDOSIS [None]
  - ACUTE MYELOID LEUKAEMIA [None]
  - ASCITES [None]
  - BACILLUS INFECTION [None]
  - BRADYCARDIA [None]
  - CARDIAC ARREST [None]
  - CARDIOPULMONARY FAILURE [None]
  - CONTINUOUS HAEMODIAFILTRATION [None]
  - DISEASE COMPLICATION [None]
  - ELECTROCARDIOGRAM QRS COMPLEX ABNORMAL [None]
  - INTERNATIONAL NORMALISED RATIO INCREASED [None]
  - LUNG DISORDER [None]
  - MYOCARDIAL INFARCTION [None]
  - PERICARDIAL EFFUSION [None]
  - SEPTIC SHOCK [None]
  - SUPRAVENTRICULAR TACHYCARDIA [None]
  - UNRESPONSIVE TO STIMULI [None]
